FAERS Safety Report 7200299-2 (Version None)
Quarter: 2010Q4

REPORT INFORMATION
  Report Type: 
  Country: None (occurrence: None)
  Receive Date: 20101228
  Receipt Date: 20101217
  Transmission Date: 20110411
  Serious: Yes (Death)
  Sender: FDA-Public Use
  Company Number: B0690191A

PATIENT

DRUGS (1)
  1. ALKERAN [Suspect]
     Route: 042

REACTIONS (1)
  - DEATH [None]
